FAERS Safety Report 19690387 (Version 9)
Quarter: 2022Q2

REPORT INFORMATION
  Report Type: Report from Study
  Country: GB (occurrence: GB)
  Receive Date: 20210812
  Receipt Date: 20220411
  Transmission Date: 20220721
  Serious: Yes (Hospitalization, Other)
  Sender: FDA-Public Use
  Company Number: GB-ROCHE-2844078

PATIENT
  Age: 67 Year
  Sex: Female
  Weight: 65.9 kg

DRUGS (39)
  1. CARBOPLATIN [Suspect]
     Active Substance: CARBOPLATIN
     Indication: Small cell lung cancer extensive stage
     Dosage: 450 MG
     Route: 065
     Dates: start: 20210401
  2. ETOPOSIDE [Suspect]
     Active Substance: ETOPOSIDE
     Indication: Small cell lung cancer extensive stage
     Dosage: 164 MG
     Dates: start: 20210401
  3. ETOPOSIDE [Suspect]
     Active Substance: ETOPOSIDE
     Dosage: 600 MG
     Route: 048
     Dates: start: 20210423
  4. ATEZOLIZUMAB [Suspect]
     Active Substance: ATEZOLIZUMAB
     Indication: Small cell lung cancer extensive stage
     Dosage: DATE OF MOST RECENT DOSE OF STUDY DRUG PRIOR TO AE:13/MAY/2021ON 10/JUN/2021
     Route: 042
     Dates: start: 20210401
  5. AMLODIPINE [Concomitant]
     Active Substance: AMLODIPINE BESYLATE
     Dosage: 1X/DAY
     Route: 065
     Dates: start: 2011
  6. AMOXICILLIN [Concomitant]
     Active Substance: AMOXICILLIN
     Dosage: UNK
     Route: 065
     Dates: start: 20210427
  7. AMOXICILLIN [Concomitant]
     Active Substance: AMOXICILLIN
     Dosage: UNK
     Route: 065
     Dates: start: 202104, end: 202105
  8. AMOXICILLIN\CLAVULANATE POTASSIUM [Concomitant]
     Active Substance: AMOXICILLIN\CLAVULANATE POTASSIUM
     Dosage: AMOXICILLIN 500MG +POTASSIUMCLAVUNALATE 125MG
     Route: 065
     Dates: start: 20210522, end: 20210531
  9. BISACODYL [Concomitant]
     Active Substance: BISACODYL
     Dosage: 2 DF, 2X/DAY
     Route: 065
     Dates: start: 20210426
  10. BISOPROLOL [Concomitant]
     Active Substance: BISOPROLOL
     Dosage: UNK, 1X/DAY
     Route: 065
     Dates: start: 2019
  11. DEXAMETHASONE [Concomitant]
     Active Substance: DEXAMETHASONE
     Dosage: 8 MG
     Route: 065
     Dates: start: 20210610, end: 20210610
  12. DOCUSATE SODIUM [Concomitant]
     Active Substance: DOCUSATE SODIUM
     Dosage: UNK
     Route: 065
     Dates: start: 20210601
  13. DOCUSATE SODIUM [Concomitant]
     Active Substance: DOCUSATE SODIUM
     Dosage: UNK
     Route: 065
     Dates: start: 20210620
  14. FILGRASTIM [Concomitant]
     Active Substance: FILGRASTIM
     Dosage: 1X/DAY30 MILLION UNITS/ 0.5MLINJECTION
     Route: 065
     Dates: start: 20210625, end: 20210628
  15. GLYCERIN [Concomitant]
     Active Substance: GLYCERIN
     Route: 065
     Dates: start: 20210430
  16. METOCLOPRAMIDE [Concomitant]
     Active Substance: METOCLOPRAMIDE
     Indication: Nausea
     Dosage: 1 DF DAILY AS NECESSARY, IF NEEDED MINIMUM DOSE INTERVAL 6 HOURS
     Route: 065
     Dates: start: 20210620
  17. METOCLOPRAMIDE [Concomitant]
     Active Substance: METOCLOPRAMIDE
     Indication: Vomiting
  18. MOVICOL [Concomitant]
     Active Substance: POLYETHYLENE GLYCOL 3350\POTASSIUM CHLORIDE\SODIUM BICARBONATE\SODIUM CHLORIDE
     Dosage: UNK, AS NEEDED
     Route: 065
     Dates: start: 20210427
  19. NICOTINE [Concomitant]
     Active Substance: NICOTINE
     Dosage: 21 MG, DAILY 21MG/24HOUR
     Route: 062
     Dates: start: 20210522
  20. NICOTINE [Concomitant]
     Active Substance: NICOTINE
     Dosage: 1MG SPRAY MANAGEMENT OF NICOTINE WITHDRAWAL. 1 TO 2 SPRAYS, WHEN REQUIRED WITH MINIMUM DOSAGE
     Route: 048
     Dates: start: 20210522
  21. CHLORAL HYDRATE [Concomitant]
     Active Substance: CHLORAL HYDRATE
     Dosage: UNK, 1X/DAY
     Route: 065
     Dates: start: 20210522
  22. ONDANSETRON [Concomitant]
     Active Substance: ONDANSETRON
     Dosage: 8 MG
     Route: 065
     Dates: start: 20210610, end: 20210610
  23. ACETAMINOPHEN [Concomitant]
     Active Substance: ACETAMINOPHEN
     Dosage: 1G, WHEN REQUIRED WITH A MINIMUMDOSAGE INTERVAL OF 4 HOURS AND AMAXIMUM OF 4 DOSES PER 24 HOURS
     Route: 065
     Dates: start: 20210522
  24. ACETAMINOPHEN [Concomitant]
     Active Substance: ACETAMINOPHEN
     Dosage: UNK, 4X/DAY
     Dates: start: 20210620
  25. ACETAMINOPHEN [Concomitant]
     Active Substance: ACETAMINOPHEN
     Dosage: UNK
  26. SODIUM PHOSPHATE, MONOBASIC, ANHYDROUS [Concomitant]
     Active Substance: SODIUM PHOSPHATE, MONOBASIC, ANHYDROUS
     Dosage: UNK, 2X/DAY EFFERVESCENT
     Route: 065
     Dates: start: 20210527, end: 20210529
  27. RAMIPRIL [Concomitant]
     Active Substance: RAMIPRIL
     Dosage: 1X/DAY
     Route: 065
     Dates: start: 2011
  28. POTASSIUM BICARBONATE\POTASSIUM CHLORIDE [Concomitant]
     Active Substance: POTASSIUM BICARBONATE\POTASSIUM CHLORIDE
     Dosage: 3 UNK, 1X/DAY EFFERVESCENT
     Route: 065
     Dates: start: 20210623, end: 20210626
  29. SENNOSIDES A AND B [Concomitant]
     Active Substance: SENNOSIDES A AND B
     Dosage: UNK, 1X/DAY
     Route: 065
     Dates: start: 20210522
  30. THIAMINE [Concomitant]
     Active Substance: THIAMINE
     Indication: Vitamin B complex deficiency
     Dosage: 3 DF, 1X/DAY
     Route: 065
     Dates: start: 20210624, end: 20210628
  31. MEROPENEM [Concomitant]
     Active Substance: MEROPENEM
     Dosage: UNK
     Dates: start: 20210620, end: 202106
  32. FORTISIP COMPACT PROTEIN [Concomitant]
  33. ANISEED [Concomitant]
     Indication: Dyspepsia
     Dosage: UNK, 3X/DAY
     Route: 048
  34. METOCLOPRAMIDE HYDROCHLORIDE [Concomitant]
     Active Substance: METOCLOPRAMIDE HYDROCHLORIDE
     Indication: Nausea
     Dosage: 10 MG, AS NEEDED
     Route: 065
     Dates: start: 20210620
  35. METOCLOPRAMIDE HYDROCHLORIDE [Concomitant]
     Active Substance: METOCLOPRAMIDE HYDROCHLORIDE
     Indication: Vomiting
  36. CALCIUM CARBONATE\SODIUM ALGINATE\SODIUM BICARBONATE [Concomitant]
     Active Substance: CALCIUM CARBONATE\SODIUM ALGINATE\SODIUM BICARBONATE
     Indication: Dyspepsia
     Dosage: 3X/DAY
     Route: 048
     Dates: start: 20210620
  37. VITAMIN B CO [Concomitant]
  38. CHOLINE [Concomitant]
     Active Substance: CHOLINE
  39. BUPIVACAINE [Concomitant]
     Active Substance: BUPIVACAINE

REACTIONS (10)
  - Thrombocytopenia [Recovered/Resolved]
  - Immune-mediated enterocolitis [Recovered/Resolved]
  - Neutropenic sepsis [Recovered/Resolved]
  - Abdominal pain [Recovered/Resolved]
  - Constipation [Recovered/Resolved]
  - Back pain [Not Recovered/Not Resolved]
  - Second primary malignancy [Not Recovered/Not Resolved]
  - Endometrial cancer [Not Recovered/Not Resolved]
  - Body temperature decreased [Recovered/Resolved]
  - Constipation [Recovered/Resolved]

NARRATIVE: CASE EVENT DATE: 20210404
